FAERS Safety Report 9001410 (Version 1)
Quarter: 2013Q1

REPORT INFORMATION
  Report Type: Spontaneous
  Country: JP (occurrence: JP)
  Receive Date: 20130107
  Receipt Date: 20130107
  Transmission Date: 20140127
  Serious: Yes (Other)
  Sender: FDA-Public Use
  Company Number: JP-MYLANLABS-2012S1026495

PATIENT
  Age: 70 Year
  Sex: Female

DRUGS (1)
  1. PRAMIPEXOLE [Suspect]
     Indication: PARKINSON^S DISEASE
     Dosage: INCREASED TO 4.5MG/DAY
     Route: 065

REACTIONS (1)
  - Camptocormia [Recovering/Resolving]
